FAERS Safety Report 26035329 (Version 1)
Quarter: 2025Q4

REPORT INFORMATION
  Report Type: Spontaneous
  Country: US (occurrence: None)
  Receive Date: 20251112
  Receipt Date: 20251112
  Transmission Date: 20260117
  Serious: Yes (Other)
  Sender: FDA-CTU
  Company Number: None

PATIENT
  Age: 65 Year
  Sex: Female
  Weight: 68.4 kg

DRUGS (1)
  1. JUBBONTI [Suspect]
     Active Substance: DENOSUMAB-BBDZ
     Indication: Senile osteoporosis
     Dosage: OTHER FREQUENCY : ONCE;?
     Route: 058
     Dates: start: 20251022, end: 20251022

REACTIONS (6)
  - Skin burning sensation [None]
  - Pruritus [None]
  - Erythema [None]
  - Skin discolouration [None]
  - Skin exfoliation [None]
  - Hypersensitivity [None]

NARRATIVE: CASE EVENT DATE: 20251022
